FAERS Safety Report 23126538 (Version 1)
Quarter: 2023Q4

REPORT INFORMATION
  Report Type: Spontaneous
  Country: US (occurrence: None)
  Receive Date: 20231026
  Receipt Date: 20231026
  Transmission Date: 20240109
  Serious: Yes (Hospitalization)
  Sender: FDA-Public Use
  Company Number: None

PATIENT
  Sex: Male

DRUGS (2)
  1. PULMOZYME [Suspect]
     Active Substance: DORNASE ALFA
     Indication: Cystic fibrosis
     Dosage: OTHER QUANTITY : 2.5 MG/2.5ML;?FREQUENCY : AS DIRECTED;?OTHER ROUTE : NEBULIZER;?
     Route: 050
     Dates: start: 20190326
  2. PULMOZYME [Suspect]
     Active Substance: DORNASE ALFA
     Dosage: OTHER QUANTITY : 2.5ML (2.5 MG);?FREQUENCY : AS DIRECTED;?OTHER ROUTE : NEBULIZER;?
     Route: 050

REACTIONS (1)
  - Infection [None]
